FAERS Safety Report 15046102 (Version 1)
Quarter: 2018Q2

REPORT INFORMATION
  Report Type: Report from Study
  Country: US (occurrence: US)
  Receive Date: 20180621
  Receipt Date: 20180621
  Transmission Date: 20180711
  Serious: Yes (Other)
  Sender: FDA-Public Use
  Company Number: US-CELGENEUS-USA-20180607125

PATIENT
  Age: 60 Year
  Sex: Male

DRUGS (12)
  1. ABRAXANE [Suspect]
     Active Substance: PACLITAXEL
     Dosage: 100 MILLIGRAM/SQ. METER
     Route: 041
     Dates: start: 20171013, end: 20171229
  2. MEDI4736 (DURVALUMAB) [Suspect]
     Active Substance: DURVALUMAB
     Indication: NON-SMALL CELL LUNG CANCER
     Dosage: 1500 MILLIGRAM
     Route: 042
     Dates: start: 20180112, end: 20180112
  3. MEDI4736 (DURVALUMAB) [Suspect]
     Active Substance: DURVALUMAB
     Dosage: 1500 MILLIGRAM
     Route: 042
     Dates: start: 20170928, end: 20171215
  4. CARBOPLATIN. [Concomitant]
     Active Substance: CARBOPLATIN
     Indication: NON-SMALL CELL LUNG CANCER
     Dosage: 5.0 AUC
     Route: 041
     Dates: start: 20171122, end: 20171122
  5. TREMELIMUMAB. [Concomitant]
     Active Substance: TREMELIMUMAB
     Indication: NON-SMALL CELL LUNG CANCER
     Dosage: 75 MILLIGRAM
     Route: 042
     Dates: start: 20170928, end: 20171215
  6. MEDI4736 (DURVALUMAB) [Suspect]
     Active Substance: DURVALUMAB
     Dosage: 1500 MILLIGRAM
     Route: 042
     Dates: start: 20180309, end: 20180604
  7. MEDI4736 (DURVALUMAB) [Suspect]
     Active Substance: DURVALUMAB
     Dosage: 1500 MILLIGRAM
     Route: 042
     Dates: start: 20180209, end: 20180209
  8. CARBOPLATIN. [Concomitant]
     Active Substance: CARBOPLATIN
     Indication: NON-SMALL CELL LUNG CANCER
     Dosage: 5.0 AUC
     Route: 041
     Dates: start: 20171027, end: 20171027
  9. CARBOPLATIN. [Concomitant]
     Active Substance: CARBOPLATIN
     Indication: NON-SMALL CELL LUNG CANCER
     Dosage: 5.0 AUC
     Route: 041
     Dates: start: 20171215, end: 20171215
  10. ABRAXANE [Suspect]
     Active Substance: PACLITAXEL
     Indication: NON-SMALL CELL LUNG CANCER
     Dosage: 100 MILLIGRAM/SQ. METER
     Route: 041
     Dates: start: 20170928, end: 20170928
  11. TREMELIMUMAB. [Concomitant]
     Active Substance: TREMELIMUMAB
     Indication: NON-SMALL CELL LUNG CANCER
     Dosage: 75 MILLIGRAM
     Route: 042
     Dates: start: 20180209, end: 20180209
  12. CARBOPLATIN. [Concomitant]
     Active Substance: CARBOPLATIN
     Indication: NON-SMALL CELL LUNG CANCER
     Dosage: 5.0 AUC
     Route: 041
     Dates: start: 20170928, end: 20170928

REACTIONS (1)
  - Dizziness [Recovered/Resolved]

NARRATIVE: CASE EVENT DATE: 20180607
